FAERS Safety Report 8557657-3 (Version None)
Quarter: 2012Q2

REPORT INFORMATION
  Report Type: 
  Country: None (occurrence: None)
  Receive Date: 20120418
  Receipt Date: 20110303
  Transmission Date: 20120825
  Serious: Yes (Other)
  Sender: FDA-Public Use
  Company Number: PHHY2011US18319

PATIENT
  Age: 76 Year
  Sex: Female

DRUGS (8)
  1. FISH OIL (FISH OIL) [Concomitant]
  2. DIOVAN HCT [Suspect]
     Indication: HYPERTENSION
  3. XALATAN [Concomitant]
  4. GLIMEPIRIDE [Concomitant]
  5. MULTIVITAMIN [Concomitant]
  6. OMEPRAZOLE [Concomitant]
  7. ANTIVERT [Concomitant]
  8. CRESTOR [Concomitant]

REACTIONS (1)
  - DIABETES MELLITUS [None]
